FAERS Safety Report 4658357-2 (Version None)
Quarter: 2005Q2

REPORT INFORMATION
  Report Type: 
  Country: None (occurrence: None)
  Receive Date: 20050511
  Receipt Date: 20050427
  Transmission Date: 20051028
  Serious: Yes (Other)
  Sender: FDA-Public Use
  Company Number: US-KINGPHARMUSA00001-K200500557

PATIENT

DRUGS (1)
  1. LEVOXYL [Suspect]
     Dosage: 88 MCG, UNK
     Route: 048

REACTIONS (2)
  - ORAL DISCOMFORT [None]
  - PHARMACEUTICAL PRODUCT COMPLAINT [None]
